FAERS Safety Report 7436622-3 (Version None)
Quarter: 2011Q1

REPORT INFORMATION
  Report Type: 
  Country: None (occurrence: None)
  Receive Date: 20110302
  Receipt Date: 20101229
  Transmission Date: 20110831
  Serious: No
  Sender: FDA-Public Use
  Company Number: 022072

PATIENT
  Sex: Female
  Weight: 68 kg

DRUGS (6)
  1. PREDNISONE [Concomitant]
  2. NEXIUM [Concomitant]
  3. PHENERGAN HCL [Concomitant]
  4. CIMZIA [Suspect]
     Indication: CROHN'S DISEASE
     Dosage: 400 MG 1X/MONTH SUBCUTANEOUS
     Route: 058
     Dates: start: 20100903
  5. OXYMORPHONE [Concomitant]
  6. IMITREX [Concomitant]

REACTIONS (2)
  - JOINT SWELLING [None]
  - ALOPECIA [None]
